FAERS Safety Report 16608735 (Version 1)
Quarter: 2019Q3

REPORT INFORMATION
  Report Type: Spontaneous
  Country: US (occurrence: US)
  Receive Date: 20190719
  Receipt Date: 20190719
  Transmission Date: 20191004
  Serious: Yes (Other)
  Sender: FDA-Public Use
  Company Number: None

PATIENT
  Age: 24 Year
  Sex: Male
  Weight: 85.5 kg

DRUGS (4)
  1. EMGALITY [Suspect]
     Active Substance: GALCANEZUMAB-GNLM
     Indication: MIGRAINE
     Dosage: ?          OTHER FREQUENCY:ONCE A MONTH;?
     Route: 058
     Dates: start: 20190121, end: 20190222
  2. ATENALOL [Concomitant]
  3. SUMATRIPTAN. [Concomitant]
     Active Substance: SUMATRIPTAN
  4. AIMOVIG [Concomitant]
     Active Substance: ERENUMAB-AOOE

REACTIONS (2)
  - Muscle twitching [None]
  - Middle insomnia [None]

NARRATIVE: CASE EVENT DATE: 20190121
